FAERS Safety Report 8818828 (Version 1)
Quarter: 2012Q4

REPORT INFORMATION
  Report Type: 
  Country: AU (occurrence: AU)
  Receive Date: 20121001
  Receipt Date: 20121001
  Transmission Date: 20130627
  Serious: Yes (Other)
  Sender: FDA-Public Use
  Company Number: PHHY2012AU079594

PATIENT
  Age: 51 Year
  Sex: Male

DRUGS (3)
  1. ACLASTA [Suspect]
     Indication: OSTEOPOROSIS
     Dosage: 5 mg, UNK
     Route: 042
     Dates: start: 20110824
  2. VALIUM [Concomitant]
     Indication: ANXIETY
     Dosage: 5-10mg daily
  3. SOMAC [Concomitant]
     Indication: PEPTIC ULCER
     Dosage: 40 mg, UNK
     Route: 048

REACTIONS (3)
  - Pallor [Recovered/Resolved]
  - Malaise [Recovered/Resolved]
  - Nausea [Recovered/Resolved]
